FAERS Safety Report 7432333-9 (Version None)
Quarter: 2011Q2

REPORT INFORMATION
  Report Type: 
  Country: None (occurrence: None)
  Receive Date: 20110422
  Receipt Date: 20110420
  Transmission Date: 20111010
  Serious: Yes (Hospitalization)
  Sender: FDA-Public Use
  Company Number: CH-PFIZER INC-2011086060

PATIENT
  Age: 67 Year
  Sex: Male
  Weight: 121 kg

DRUGS (6)
  1. ASPIRIN [Concomitant]
     Dosage: 100 MG, 1X/DAY
     Route: 048
  2. SORTIS [Suspect]
     Dosage: 40 MG, 1X/DAY
     Route: 048
     Dates: end: 20110401
  3. DIOVAN [Concomitant]
     Dosage: 100 MG, 1X/DAY
     Route: 048
  4. PANTOPRAZOLE [Suspect]
     Dosage: 40 MG, 1X/DAY
     Route: 048
     Dates: start: 20110301, end: 20110401
  5. ALLOPUR [Suspect]
     Dosage: 300 MG, 1X/DAY
     Route: 048
     Dates: start: 20010101, end: 20110401
  6. METO ZEROK [Concomitant]
     Dosage: 25 MG, 1X/DAY
     Route: 048

REACTIONS (2)
  - HYPERBILIRUBINAEMIA [None]
  - HEPATOCELLULAR INJURY [None]
